FAERS Safety Report 5399523-0 (Version None)
Quarter: 2007Q3

REPORT INFORMATION
  Report Type: 
  Country: None (occurrence: None)
  Receive Date: 20070727
  Receipt Date: 20070717
  Transmission Date: 20080115
  Serious: Yes (Disabling)
  Sender: FDA-Public Use
  Company Number: DE-PFIZER INC-2007048975

PATIENT
  Sex: Female
  Weight: 55 kg

DRUGS (2)
  1. LYRICA [Suspect]
     Indication: PAIN
     Dosage: DAILY DOSE:375MG-FREQ:PER DAY
     Route: 048
  2. DRONABINOL [Concomitant]
     Dosage: DAILY DOSE:7.5MG-FREQ:PER DAY

REACTIONS (2)
  - MUSCULAR WEAKNESS [None]
  - PARESIS [None]
